FAERS Safety Report 14230748 (Version 1)
Quarter: 2017Q4

REPORT INFORMATION
  Report Type: Report from Study
  Country: US (occurrence: US)
  Receive Date: 20171128
  Receipt Date: 20171128
  Transmission Date: 20180321
  Serious: Yes (Death)
  Sender: FDA-Public Use
  Company Number: US-PFIZER INC-2017296654

PATIENT
  Age: 71 Year
  Sex: Male

DRUGS (1)
  1. SUTENT [Suspect]
     Active Substance: SUNITINIB MALATE
     Indication: RENAL CELL CARCINOMA
     Dosage: 50 MG, 1X/DAY
     Route: 048
     Dates: start: 20170624

REACTIONS (6)
  - Decreased appetite [Recovering/Resolving]
  - Back pain [Unknown]
  - Constipation [Unknown]
  - Death [Fatal]
  - Fatigue [Recovered/Resolved]
  - Glossitis [Unknown]

NARRATIVE: CASE EVENT DATE: 2017
